FAERS Safety Report 6404118-3 (Version None)
Quarter: 2009Q4

REPORT INFORMATION
  Report Type: 
  Country: None (occurrence: None)
  Receive Date: 20091016
  Receipt Date: 20090904
  Transmission Date: 20100525
  Serious: No
  Sender: FDA-Public Use
  Company Number: US-ALEXION-A200900722

PATIENT
  Sex: Female

DRUGS (8)
  1. SOLIRIS [Suspect]
     Indication: PAROXYSMAL NOCTURNAL HAEMOGLOBINURIA
     Dosage: UNK
     Route: 042
     Dates: start: 20070101
  2. SOLIRIS [Suspect]
     Dosage: 900 MG, Q2W
     Route: 042
  3. FOLIC ACID [Concomitant]
     Dosage: 1 MG, BID
  4. KEPPRA [Concomitant]
     Dosage: 750 MG, UNK
  5. NEXIUM [Concomitant]
     Dosage: 40 MG, UNK
  6. ZOLOFT [Concomitant]
     Dosage: 50 MG, QD
  7. ALPRAZOLAM [Concomitant]
     Indication: SLEEP DISORDER
     Dosage: 1 MG, Q4H X2 HS
     Route: 048
  8. LORAZEPAM [Concomitant]
     Indication: PREMEDICATION
     Dosage: 1 MG, PRIOR TO SOLIRIS INFUSION

REACTIONS (1)
  - BACK PAIN [None]
